FAERS Safety Report 7892428-2 (Version None)
Quarter: 2011Q4

REPORT INFORMATION
  Report Type: 
  Country: None (occurrence: None)
  Receive Date: 20111026
  Receipt Date: 20111018
  Transmission Date: 20120403
  Serious: No
  Sender: FDA-Public Use
  Company Number: IN-145256

PATIENT
  Age: 4 Year
  Sex: Male

DRUGS (1)
  1. WINRHO [Suspect]
     Indication: THROMBOCYTOPENIA
     Dosage: (75 UG/KG INTRAVENOUS (NOT OTHERWISE SPECIFIED
     Route: 042

REACTIONS (2)
  - HAEMOGLOBIN DECREASED [None]
  - HAEMOLYSIS [None]
